FAERS Safety Report 8142328-8 (Version None)
Quarter: 2012Q1

REPORT INFORMATION
  Report Type: 
  Country: None (occurrence: None)
  Receive Date: 20120216
  Receipt Date: 20120207
  Transmission Date: 20120608
  Serious: Yes (Other)
  Sender: FDA-Public Use
  Company Number: US-NOVOPROD-344534

PATIENT
  Age: 63 Year
  Sex: Female
  Weight: 54.422 kg

DRUGS (2)
  1. ACTIVELLA [Suspect]
     Indication: MENOPAUSE
     Dosage: 0.5 MG, QD
     Route: 048
     Dates: start: 20040101, end: 20111228
  2. AVONEX [Concomitant]
     Indication: MULTIPLE SCLEROSIS
     Dosage: UNK
     Route: 058

REACTIONS (2)
  - NAUSEA [None]
  - BREAST MASS [None]
